FAERS Safety Report 8319645-1 (Version None)
Quarter: 2012Q2

REPORT INFORMATION
  Report Type: 
  Country: None (occurrence: None)
  Receive Date: 20120427
  Receipt Date: 20120425
  Transmission Date: 20120825
  Serious: Yes (Death, Life-Threatening, Hospitalization, Other)
  Sender: FDA-Public Use
  Company Number: PHHY2012CA024387

PATIENT
  Sex: Male

DRUGS (1)
  1. CLOZARIL [Suspect]
     Dosage: UNK
     Route: 048
     Dates: start: 20110801, end: 20120329

REACTIONS (5)
  - CARDIAC ARREST [None]
  - DEATH [None]
  - PULMONARY CONGESTION [None]
  - PULMONARY EMBOLISM [None]
  - CEREBRAL ISCHAEMIA [None]
